FAERS Safety Report 21577675 (Version 1)
Quarter: 2022Q4

REPORT INFORMATION
  Report Type: Spontaneous
  Country: CN (occurrence: CN)
  Receive Date: 20221110
  Receipt Date: 20221110
  Transmission Date: 20230113
  Serious: Yes (Other)
  Sender: FDA-Public Use
  Company Number: CN-009507513-2211CHN002379

PATIENT
  Age: 78 Year
  Sex: Male
  Weight: 65 kg

DRUGS (6)
  1. KEYTRUDA [Suspect]
     Active Substance: PEMBROLIZUMAB
     Indication: Lung neoplasm malignant
     Dosage: 200 MG, D1, EVERY 21 DAYS
     Route: 041
     Dates: start: 20220712, end: 20220712
  2. PACLITAXEL [Suspect]
     Active Substance: PACLITAXEL
     Indication: Lung neoplasm malignant
     Dosage: 300 MG, D1, EVERY 21 DAYS
     Route: 041
     Dates: start: 20220712, end: 20220712
  3. CARBOPLATIN [Suspect]
     Active Substance: CARBOPLATIN
     Indication: Lung neoplasm malignant
     Dosage: 200 MG, D1, EVERY 21 DAYS
     Route: 041
     Dates: start: 20220712, end: 20220712
  4. SODIUM CHLORIDE [Concomitant]
     Active Substance: SODIUM CHLORIDE
     Indication: Lung neoplasm malignant
     Dosage: 100 ML, D1, EVERY 21 DAYS
     Dates: start: 20220712, end: 20220712
  5. SODIUM CHLORIDE [Concomitant]
     Active Substance: SODIUM CHLORIDE
     Dosage: 500 ML, D1, EVERY 21 DAYS
     Dates: start: 20220712, end: 20220712
  6. SODIUM CHLORIDE [Concomitant]
     Active Substance: SODIUM CHLORIDE
     Dosage: 100 ML, D1, EVERY 21 DAYS
     Dates: start: 20220712, end: 20220712

REACTIONS (4)
  - Pruritus [Recovering/Resolving]
  - Skin ulcer [Recovering/Resolving]
  - Pain [Recovering/Resolving]
  - Sleep disorder [Unknown]

NARRATIVE: CASE EVENT DATE: 20221101
